FAERS Safety Report 8765432 (Version 1)
Quarter: 2012Q4

REPORT INFORMATION
  Report Type: 
  Country: US (occurrence: US)
  Receive Date: 20120903
  Receipt Date: 20120903
  Transmission Date: 20130627
  Serious: Yes (Hospitalization, Other)
  Sender: FDA-Public Use
  Company Number: US-AMGEN-USASP2012054767

PATIENT
  Sex: Male

DRUGS (3)
  1. PROCRIT [Suspect]
     Indication: ANAEMIA
     Dosage: UNK, 3 times/wk
     Dates: start: 201107, end: 201207
  2. PROCRIT [Suspect]
     Dosage: UNK
     Dates: start: 201002, end: 201108
  3. LUPRON [Concomitant]
     Dosage: UNK
     Dates: start: 201002

REACTIONS (13)
  - Fluid retention [Recovered/Resolved]
  - Abasia [Unknown]
  - Oedema peripheral [Recovered/Resolved]
  - Viral infection [Unknown]
  - Bladder neoplasm [Not Recovered/Not Resolved]
  - Prostate cancer [Not Recovered/Not Resolved]
  - Renal impairment [Unknown]
  - Cardiac disorder [Unknown]
  - Arterial occlusive disease [Unknown]
  - Cardiac stress test abnormal [Unknown]
  - Prostatic specific antigen decreased [Not Recovered/Not Resolved]
  - Haemoglobin decreased [Unknown]
  - Asthenia [Not Recovered/Not Resolved]
